APPROVED DRUG PRODUCT: TORSEMIDE
Active Ingredient: TORSEMIDE
Strength: 20MG
Dosage Form/Route: TABLET;ORAL
Application: A078249 | Product #003 | TE Code: AB
Applicant: AUROBINDO PHARMA LTD
Approved: Oct 17, 2007 | RLD: No | RS: No | Type: RX